FAERS Safety Report 24168538 (Version 1)
Quarter: 2024Q3

REPORT INFORMATION
  Report Type: Spontaneous
  Country: ES (occurrence: ES)
  Receive Date: 20240802
  Receipt Date: 20240802
  Transmission Date: 20241017
  Serious: Yes (Hospitalization)
  Sender: TEVA
  Company Number: None

PATIENT
  Age: 88 Year
  Sex: Male

DRUGS (6)
  1. LEVOFLOXACIN [Suspect]
     Active Substance: LEVOFLOXACIN
     Indication: Pneumonia
     Dosage: LEVOFLOXACINO (2791A)
     Route: 048
     Dates: start: 20240625, end: 20240628
  2. TAMSULOSIN HYDROCHLORIDE [Concomitant]
     Active Substance: TAMSULOSIN HYDROCHLORIDE
     Indication: Benign prostatic hyperplasia
     Dosage: TAMSULOSINA HIDROCLORURO (2751CH)
     Route: 048
     Dates: start: 20230824
  3. TOUJEO [Concomitant]
     Active Substance: INSULIN GLARGINE
     Indication: Diabetes mellitus
     Dosage: 300 UNITS/ML DOUBLESTAR
     Route: 058
     Dates: start: 20230824
  4. ASPIRIN [Suspect]
     Active Substance: ASPIRIN
     Indication: Prophylaxis
     Route: 048
     Dates: start: 20230824
  5. PYRILAMINE [Suspect]
     Active Substance: PYRILAMINE
     Indication: Pneumonia
     Dosage: MEPIRAMINA ACEFILINATO (1908AA)
     Route: 048
     Dates: start: 20240625, end: 20240628
  6. SITAGLIPTIN [Concomitant]
     Active Substance: SITAGLIPTIN
     Indication: Diabetes mellitus
     Dosage: SITAGLIPTINA (8075A)
     Route: 048
     Dates: start: 20230516

REACTIONS (1)
  - Tinnitus [Unknown]

NARRATIVE: CASE EVENT DATE: 20240625
